FAERS Safety Report 5084675-2 (Version None)
Quarter: 2006Q3

REPORT INFORMATION
  Report Type: 
  Country: None (occurrence: None)
  Receive Date: 20060818
  Receipt Date: 20060818
  Transmission Date: 20061208
  Serious: No
  Sender: FDA-Public Use
  Company Number: None

PATIENT
  Sex: Male
  Weight: 68.9467 kg

DRUGS (14)
  1. LEVETIRACETAM [Suspect]
     Indication: COMPLEX PARTIAL SEIZURES
     Dosage: 750 MG BID PO
     Route: 048
     Dates: start: 20060410, end: 20060523
  2. ALBUTEROL SULFATE AND IPRATROPIUM BROMIDE [Concomitant]
  3. ARIPIPRAZOLE [Concomitant]
  4. CARBAMAZEPINE [Concomitant]
  5. CITALOPRAM HYDROBROMIDE [Concomitant]
  6. CLINDAMYCIN HCL [Concomitant]
  7. CYCLOBENZAPRINE HCL [Concomitant]
  8. FOLIC ACID [Concomitant]
  9. HYDROCODONE 5/ACETAMINOPHEN [Concomitant]
  10. LACTULOSE [Concomitant]
  11. METRONIDAZOLE [Concomitant]
  12. MULTIVITS W/MINERALS [Concomitant]
  13. OMEPRAZOLE [Concomitant]
  14. TRAZODONE HCL [Concomitant]

REACTIONS (2)
  - HALLUCINATION, VISUAL [None]
  - PSYCHOTIC DISORDER [None]
